FAERS Safety Report 7571976-9 (Version None)
Quarter: 2011Q2

REPORT INFORMATION
  Report Type: 
  Country: None (occurrence: None)
  Receive Date: 20110620
  Receipt Date: 20110603
  Transmission Date: 20111010
  Serious: Yes (Other)
  Sender: FDA-Public Use
  Company Number: 2011P1006980

PATIENT
  Age: 64 Year
  Sex: Female
  Weight: 62.5964 kg

DRUGS (11)
  1. FENTANYL [Suspect]
     Indication: PAIN
     Dosage: ; Q48HRS; TDER
     Route: 062
     Dates: start: 20060101, end: 20090101
  2. HYDROCHLOROTHIAZIDE [Concomitant]
  3. WELLBUTRIN [Concomitant]
  4. PREMARIN 0.9% [Concomitant]
  5. PROZAC [Concomitant]
  6. MELOXICAM [Concomitant]
  7. METOPROLOL TARTRATE [Concomitant]
  8. XANAX [Concomitant]
  9. BUSPAR [Concomitant]
  10. FENTANYL-75 [Suspect]
     Indication: PAIN
     Dosage: 1 PATCH; Q2D; TDER
     Route: 062
     Dates: start: 20090101
  11. LORTAB [Concomitant]

REACTIONS (6)
  - OVERDOSE [None]
  - SOMNOLENCE [None]
  - FEELING ABNORMAL [None]
  - INADEQUATE ANALGESIA [None]
  - LOSS OF CONSCIOUSNESS [None]
  - HEAD INJURY [None]
